FAERS Safety Report 5332632-0 (Version None)
Quarter: 2007Q2

REPORT INFORMATION
  Report Type: 
  Country: None (occurrence: None)
  Receive Date: 20070523
  Receipt Date: 20070514
  Transmission Date: 20071010
  Serious: Yes (Hospitalization)
  Sender: FDA-Public Use
  Company Number: FR-PFIZER INC-2007038412

PATIENT
  Sex: Female

DRUGS (2)
  1. CEFPODOXIME PROXETIL SUSPENSION [Suspect]
     Indication: OTITIS MEDIA
     Route: 048
     Dates: start: 20070122, end: 20070128
  2. AMOXICILLIN [Suspect]
     Indication: OTITIS MEDIA
     Route: 048
     Dates: start: 20070128, end: 20070131

REACTIONS (4)
  - ABDOMINAL DISTENSION [None]
  - COLITIS [None]
  - DIARRHOEA [None]
  - PYREXIA [None]
